FAERS Safety Report 9621884 (Version 2)
Quarter: 2013Q4

REPORT INFORMATION
  Report Type: Spontaneous
  Country: GB (occurrence: GB)
  Receive Date: 20131015
  Receipt Date: 20131022
  Transmission Date: 20140711
  Serious: Yes (Life-Threatening)
  Sender: FDA-Public Use
  Company Number: GB-PFIZER INC-2013291681

PATIENT
  Age: 65 Year
  Sex: Male

DRUGS (7)
  1. MORPHINE SULFATE [Suspect]
     Dosage: UNK
  2. PROPOFOL [Suspect]
     Indication: INDUCTION OF ANAESTHESIA
     Dosage: 100 MG, UNK
     Route: 042
     Dates: start: 201209, end: 201209
  3. FENTANYL [Suspect]
     Indication: INDUCTION OF ANAESTHESIA
     Dosage: 300 UG, UNK
     Route: 042
     Dates: start: 201209, end: 201209
  4. ATRACURIUM [Suspect]
     Indication: INDUCTION OF ANAESTHESIA
     Dosage: 50 MG, UNK
     Route: 042
     Dates: start: 201209, end: 201209
  5. FLUCLOXACILLIN [Suspect]
     Indication: POSTOPERATIVE CARE
     Dosage: 1 G, UNK
     Route: 042
     Dates: start: 201209, end: 201209
  6. GENTAMICIN [Suspect]
     Indication: POSTOPERATIVE CARE
     Dosage: 3 MG/KG, UNK
     Route: 042
     Dates: start: 201209, end: 201209
  7. CHLORHEXIDINE [Suspect]
     Dosage: UNK
     Route: 061
     Dates: start: 201209, end: 201209

REACTIONS (5)
  - Anaphylactic reaction [Recovered/Resolved]
  - Hypotension [Unknown]
  - Tachycardia [Unknown]
  - Rash [Unknown]
  - Bronchospasm [Unknown]
